FAERS Safety Report 19295719 (Version 4)
Quarter: 2022Q2

REPORT INFORMATION
  Report Type: Spontaneous
  Country: US (occurrence: US)
  Receive Date: 20210524
  Receipt Date: 20220404
  Transmission Date: 20220721
  Serious: Yes (Hospitalization, Other)
  Sender: FDA-Public Use
  Company Number: US-PFIZER INC-2021530665

PATIENT
  Age: 67 Year
  Sex: Female

DRUGS (3)
  1. ARTHROTEC [Suspect]
     Active Substance: DICLOFENAC SODIUM\MISOPROSTOL
     Indication: Chondropathy
     Dosage: 1 DF, 3X/DAY  [MISOPROSTOL 200MG / DICLOFENAC SODIUM 50 MG] (1 TABLET BY MOUTH THREE TIMES A DAY)
     Route: 048
  2. ARTHROTEC [Suspect]
     Active Substance: DICLOFENAC SODIUM\MISOPROSTOL
     Indication: Osteoarthritis
     Dosage: 1 DF, 3X/DAY  [MISOPROSTOL 200MCG / DICLOFENAC SODIUM 50 MG]
     Route: 048
     Dates: start: 20210930
  3. ARTHROTEC [Suspect]
     Active Substance: DICLOFENAC SODIUM\MISOPROSTOL
     Indication: Pain
     Dosage: 1 DF, 3X/DAY  [MISOPROSTOL 200MCG / DICLOFENAC SODIUM 50 MG]
     Route: 048
     Dates: start: 20211207

REACTIONS (4)
  - COVID-19 [Unknown]
  - Hip arthroplasty [Unknown]
  - Therapeutic product effect incomplete [Unknown]
  - Intentional product misuse [Unknown]

NARRATIVE: CASE EVENT DATE: 20201201
